FAERS Safety Report 23896383 (Version 1)
Quarter: 2024Q2

REPORT INFORMATION
  Report Type: Spontaneous
  Country: US (occurrence: None)
  Receive Date: 20240524
  Receipt Date: 20240524
  Transmission Date: 20240716
  Serious: Yes (unspecified)
  Sender: FDA-Public Use
  Company Number: None

PATIENT
  Age: 30 Year
  Sex: Female
  Weight: 72 kg

DRUGS (4)
  1. ARIPIPRAZOLE [Suspect]
     Active Substance: ARIPIPRAZOLE
     Indication: Bipolar disorder
     Dosage: OTHER QUANTITY : 20 TABLET(S);?FREQUENCY : AT BEDTIME;?
     Route: 048
     Dates: start: 20240226, end: 20240521
  2. VITAMINS [Concomitant]
     Active Substance: VITAMINS
  3. DIETARY SUPPLEMENT [Concomitant]
     Active Substance: DIETARY SUPPLEMENT
  4. 5-HTP [Concomitant]

REACTIONS (4)
  - Drug abuse [None]
  - Vomiting [None]
  - Panic attack [None]
  - Anaemia [None]

NARRATIVE: CASE EVENT DATE: 20240305
